FAERS Safety Report 24782739 (Version 1)
Quarter: 2024Q4

REPORT INFORMATION
  Report Type: Spontaneous
  Country: IN (occurrence: IN)
  Receive Date: 20241227
  Receipt Date: 20241227
  Transmission Date: 20250114
  Serious: Yes (Hospitalization, Other)
  Sender: PFIZER
  Company Number: IN-PFIZER INC-PV202400166019

PATIENT
  Age: 49 Year
  Sex: Male

DRUGS (7)
  1. CRIZOTINIB [Interacting]
     Active Substance: CRIZOTINIB
     Indication: Lung adenocarcinoma
     Dosage: UNK
     Dates: start: 20230805
  2. CRIZOTINIB [Interacting]
     Active Substance: CRIZOTINIB
     Dosage: 250 MG, 2X/DAY
     Route: 048
     Dates: start: 20230816, end: 20240318
  3. CRIZOTINIB [Interacting]
     Active Substance: CRIZOTINIB
     Dosage: 250 MG, ALTERNATE DAY (REPORTED AS OD)
     Route: 048
     Dates: start: 20240417, end: 20240628
  4. CRIZOTINIB [Interacting]
     Active Substance: CRIZOTINIB
     Dosage: 250 MG, 1X/DAY
     Route: 048
     Dates: start: 20240629, end: 20240705
  5. CRIZOTINIB [Interacting]
     Active Substance: CRIZOTINIB
     Dosage: 250 MG, 2X/DAY
     Route: 048
     Dates: start: 20240705, end: 20240728
  6. CRIZOTINIB [Interacting]
     Active Substance: CRIZOTINIB
     Dosage: UNK, ALTERNATE DAY
     Dates: start: 20241024
  7. ITRACONAZOLE [Interacting]
     Active Substance: ITRACONAZOLE
     Dosage: 200 MG

REACTIONS (7)
  - Pneumonia [Recovered/Resolved]
  - Sepsis [Unknown]
  - Acute kidney injury [Unknown]
  - Pneumonia fungal [Recovered/Resolved]
  - Lung opacity [Unknown]
  - Drug interaction [Unknown]
  - Off label use [Unknown]

NARRATIVE: CASE EVENT DATE: 20240222
